FAERS Safety Report 9970260 (Version 1)
Quarter: 2014Q1

REPORT INFORMATION
  Report Type: Spontaneous
  Country: US (occurrence: None)
  Receive Date: 20140218
  Receipt Date: 20140218
  Transmission Date: 20141002
  Serious: Yes (Other)
  Sender: FDA-Public Use
  Company Number: OMPQ-PR-1308S-1041

PATIENT
  Age: 82 Year
  Sex: Male
  Weight: 59.88 kg

DRUGS (4)
  1. OMNIPAQUE [Suspect]
     Indication: BLADDER CANCER
     Route: 042
     Dates: start: 20130820, end: 20130820
  2. OMNIPAQUE [Suspect]
     Indication: COLON CANCER
     Route: 042
     Dates: start: 20130820, end: 20130820
  3. OMNIPAQUE [Suspect]
     Indication: PROSTATE CANCER
     Route: 042
     Dates: start: 20130820, end: 20130820
  4. OMNIPAQUE [Suspect]
     Indication: DIAGNOSTIC PROCEDURE
     Route: 042
     Dates: start: 20130820, end: 20130820

REACTIONS (1)
  - Urticaria [None]
